FAERS Safety Report 5134038-6 (Version None)
Quarter: 2006Q4

REPORT INFORMATION
  Report Type: 
  Country: None (occurrence: None)
  Receive Date: 20061019
  Receipt Date: 20061004
  Transmission Date: 20070319
  Serious: Yes (Other)
  Sender: FDA-Public Use
  Company Number: WAES 0610USA04392

PATIENT
  Age: 48 Year
  Sex: Female

DRUGS (1)
  1. ALENDRONATE SODIUM [Suspect]
     Indication: METASTASES TO BONE
     Dosage: INJ
     Dates: start: 20030101

REACTIONS (1)
  - OSTEONECROSIS [None]
